FAERS Safety Report 24043490 (Version 4)
Quarter: 2025Q1

REPORT INFORMATION
  Report Type: Report from Study
  Country: US (occurrence: US)
  Receive Date: 20240703
  Receipt Date: 20250121
  Transmission Date: 20250409
  Serious: Yes (Hospitalization)
  Sender: Unknown Manufacturer
  Company Number: US-MIRUM PHARMACEUTICALS, INC.-US-MIR-24-00343

PATIENT
  Sex: Male
  Weight: 12.7 kg

DRUGS (4)
  1. LIVMARLI [Suspect]
     Active Substance: MARALIXIBAT CHLORIDE
     Indication: Pruritus
     Dosage: 0.6 MILLILITER, QD
     Route: 048
     Dates: start: 20240323, end: 2024
  2. URSODIOL [Concomitant]
     Active Substance: URSODIOL
     Indication: Product used for unknown indication
     Route: 065
  3. RIFAMPIN [Concomitant]
     Active Substance: RIFAMPIN
     Indication: Product used for unknown indication
     Route: 065
  4. OMEPRAZOLE [Concomitant]
     Active Substance: OMEPRAZOLE
     Indication: Product used for unknown indication
     Route: 065

REACTIONS (5)
  - Hepatic function abnormal [Unknown]
  - Liver transplant [Unknown]
  - Gastrointestinal haemorrhage [Recovered/Resolved]
  - Epigastric discomfort [Unknown]
  - Off label use [Unknown]

NARRATIVE: CASE EVENT DATE: 20240101
